FAERS Safety Report 14679644 (Version 3)
Quarter: 2018Q2

REPORT INFORMATION
  Report Type: Spontaneous
  Country: JP (occurrence: JP)
  Receive Date: 20180326
  Receipt Date: 20180402
  Transmission Date: 20180711
  Serious: Yes (Other)
  Sender: FDA-Public Use
  Company Number: PHJP2018JP006691

PATIENT
  Age: 76 Year
  Sex: Female

DRUGS (2)
  1. STALEVO [Suspect]
     Active Substance: CARBIDOPA\ENTACAPONE\LEVODOPA
     Indication: THERAPEUTIC RESPONSE SHORTENED
  2. STALEVO [Suspect]
     Active Substance: CARBIDOPA\ENTACAPONE\LEVODOPA
     Indication: PARKINSON^S DISEASE
     Dosage: 100 MG, 5QD
     Route: 048

REACTIONS (3)
  - Fall [Recovering/Resolving]
  - Femur fracture [Recovering/Resolving]
  - Anaemia postoperative [Not Recovered/Not Resolved]
